FAERS Safety Report 8500336-9 (Version None)
Quarter: 2012Q3

REPORT INFORMATION
  Report Type: 
  Country: None (occurrence: None)
  Receive Date: 20120710
  Receipt Date: 20120702
  Transmission Date: 20120928
  Serious: Yes (Other)
  Sender: FDA-Public Use
  Company Number: JP-JNJFOC-20120702364

PATIENT
  Age: 7 Decade
  Sex: Female

DRUGS (1)
  1. RISPERDAL [Suspect]
     Indication: SCHIZOPHRENIA
     Route: 048

REACTIONS (4)
  - UNDERDOSE [None]
  - FALL [None]
  - LOSS OF CONTROL OF LEGS [None]
  - DIZZINESS [None]
